FAERS Safety Report 25946606 (Version 1)
Quarter: 2025Q4

REPORT INFORMATION
  Report Type: Spontaneous
  Country: US (occurrence: US)
  Receive Date: 20251022
  Receipt Date: 20251022
  Transmission Date: 20260118
  Serious: Yes (Other)
  Sender: STRIDES
  Company Number: US-STRIDES ARCOLAB LIMITED-2025SP013098

PATIENT
  Age: 32 Year
  Sex: Male

DRUGS (3)
  1. OXYCODONE [Suspect]
     Active Substance: OXYCODONE
     Indication: Proctalgia
     Dosage: UNK
     Route: 065
  2. OXYCODONE [Suspect]
     Active Substance: OXYCODONE
     Indication: Abdominal pain
  3. BOTULINUM TOXIN NOS [Concomitant]
     Active Substance: BOTULINUM TOXIN NOS
     Indication: Muscle spasms
     Dosage: UNK
     Route: 065

REACTIONS (4)
  - Levator syndrome [Recovering/Resolving]
  - Visceral pain [Recovering/Resolving]
  - Condition aggravated [Recovering/Resolving]
  - Drug dependence [Recovered/Resolved]
